FAERS Safety Report 7536270-0 (Version None)
Quarter: 2011Q2

REPORT INFORMATION
  Report Type: 
  Country: None (occurrence: None)
  Receive Date: 20110609
  Receipt Date: 20110527
  Transmission Date: 20111010
  Serious: Yes (Other)
  Sender: FDA-Public Use
  Company Number: JP-CELGENEUS-087-21660-11053894

PATIENT
  Sex: Female
  Weight: 56 kg

DRUGS (2)
  1. ABRAXANE [Suspect]
     Dosage: 195 MILLIGRAM
     Route: 050
     Dates: start: 20110414, end: 20110421
  2. ABRAXANE [Suspect]
     Indication: BREAST CANCER METASTATIC
     Dosage: 234 MILLIGRAM
     Route: 050
     Dates: start: 20110217

REACTIONS (1)
  - DECREASED APPETITE [None]
